FAERS Safety Report 21192006 (Version 4)
Quarter: 2022Q4

REPORT INFORMATION
  Report Type: Report from Study
  Country: US (occurrence: US)
  Receive Date: 20220809
  Receipt Date: 20221224
  Transmission Date: 20230113
  Serious: No
  Sender: FDA-Public Use
  Company Number: US-NOVARTISTESTPH-NVSC2022US179768

PATIENT
  Sex: Female

DRUGS (4)
  1. ENTRESTO [Suspect]
     Active Substance: SACUBITRIL\VALSARTAN
     Indication: Product used for unknown indication
     Dosage: 1 DOSAGE FORM, BID
     Route: 065
     Dates: start: 20220728
  2. ENTRESTO [Suspect]
     Active Substance: SACUBITRIL\VALSARTAN
     Dosage: 1 DOSAGE FORM, BID (49/51)
     Route: 065
     Dates: start: 20220728
  3. ENTRESTO [Suspect]
     Active Substance: SACUBITRIL\VALSARTAN
     Dosage: 1 DOSAGE FORM, BID (49/51MG)
     Route: 065
  4. FARXIGA [Suspect]
     Active Substance: DAPAGLIFLOZIN PROPANEDIOL
     Indication: Product used for unknown indication
     Dosage: UNK
     Route: 065

REACTIONS (14)
  - Contusion [Unknown]
  - Arthralgia [Unknown]
  - Fungal infection [Unknown]
  - Dyspnoea [Unknown]
  - Weight fluctuation [Unknown]
  - Tendonitis [Unknown]
  - Limb discomfort [Unknown]
  - Ejection fraction decreased [Unknown]
  - Palpitations [Unknown]
  - Gait disturbance [Unknown]
  - Chills [Unknown]
  - Influenza [Unknown]
  - Pyrexia [Unknown]
  - Back pain [Unknown]
